FAERS Safety Report 5934787-3 (Version None)
Quarter: 2008Q4

REPORT INFORMATION
  Report Type: 
  Country: None (occurrence: None)
  Receive Date: 20081010
  Receipt Date: 20080314
  Transmission Date: 20090506
  Serious: Yes (Other)
  Sender: FDA-Public Use
  Company Number: 2008SP005222

PATIENT
  Age: 62 Year
  Sex: Female

DRUGS (9)
  1. TEMODAR [Suspect]
     Indication: GLIOBLASTOMA MULTIFORME
     Dosage: PO
     Route: 048
     Dates: start: 20051001
  2. CALCIUM + VITAMIN D [Concomitant]
  3. DILANTIN /00017401/ [Concomitant]
  4. LEVOTHYROXINE /00068002/ [Concomitant]
  5. LISINOPRIL HYDROCHLORTHIAZID [Concomitant]
  6. MULTIVITAMIN /00097801/ [Concomitant]
  7. LOVAZA [Concomitant]
  8. RITALIN [Concomitant]
  9. VITAMIN B12 /00056201/ [Concomitant]

REACTIONS (1)
  - MYELODYSPLASTIC SYNDROME [None]
